FAERS Safety Report 8991064 (Version 1)
Quarter: 2012Q4

REPORT INFORMATION
  Report Type: Spontaneous
  Country: US (occurrence: None)
  Receive Date: 20121227
  Receipt Date: 20121227
  Transmission Date: 20130627
  Serious: No
  Sender: FDA-Public Use
  Company Number: None

PATIENT
  Age: 61 Year
  Sex: Female

DRUGS (5)
  1. REVLIMID 10MG CELGENE [Suspect]
     Indication: MULTIPLE MYELOMA
     Route: 048
     Dates: start: 201111
  2. DEXAMETHASONE [Concomitant]
  3. AMLODIPINE [Concomitant]
  4. LISINOPRIL [Concomitant]
  5. METOPROLOL [Concomitant]

REACTIONS (3)
  - Blister [None]
  - Neuropathy peripheral [None]
  - Headache [None]
